FAERS Safety Report 5177936-X (Version None)
Quarter: 2006Q4

REPORT INFORMATION
  Report Type: 
  Country: None (occurrence: None)
  Receive Date: 20061208
  Receipt Date: 20061127
  Transmission Date: 20070319
  Serious: Yes (Hospitalization)
  Sender: FDA-Public Use
  Company Number: 2006146025

PATIENT
  Age: 34 Year
  Sex: Female

DRUGS (3)
  1. PREDNISOLONE [Suspect]
     Indication: ARTHRITIS
     Dosage: (5 MG), ORAL
     Route: 048
     Dates: start: 20060516, end: 20060714
  2. FURADANTIN [Concomitant]
  3. SELEXIX (PIVMECILLINAM HYDROCHLORIDE) [Concomitant]

REACTIONS (3)
  - CYSTITIS HAEMORRHAGIC [None]
  - DRUG EXPOSURE DURING PREGNANCY [None]
  - URETHRITIS [None]
